FAERS Safety Report 25542430 (Version 2)
Quarter: 2025Q3

REPORT INFORMATION
  Report Type: Spontaneous
  Country: US (occurrence: US)
  Receive Date: 20250711
  Receipt Date: 20250812
  Transmission Date: 20251021
  Serious: No
  Sender: TAKEDA
  Company Number: US-TAKEDA-2025TUS062442

PATIENT
  Sex: Female

DRUGS (1)
  1. FRUZAQLA [Suspect]
     Active Substance: FRUQUINTINIB
     Indication: Product used for unknown indication

REACTIONS (3)
  - No adverse event [Unknown]
  - Product physical issue [Unknown]
  - Accidental exposure to product [Unknown]
